FAERS Safety Report 10094964 (Version 2)
Quarter: 2014Q3

REPORT INFORMATION
  Report Type: Spontaneous
  Country: JP (occurrence: JP)
  Receive Date: 20140422
  Receipt Date: 20140703
  Transmission Date: 20150326
  Serious: Yes (Hospitalization, Other)
  Sender: FDA-Public Use
  Company Number: PHJP2014JP000720

PATIENT
  Age: 21 Year
  Sex: Male
  Weight: 62 kg

DRUGS (4)
  1. DEPAKENE [Concomitant]
     Active Substance: VALPROIC ACID
     Dosage: UNK UKN, UNK
     Route: 048
  2. TAKEPRON [Concomitant]
     Active Substance: LANSOPRAZOLE
     Dosage: UNK UKN, UNK
     Route: 048
  3. TEGRETOL [Suspect]
     Active Substance: CARBAMAZEPINE
     Indication: EPILEPSY
     Dosage: 50 MG, BID
     Route: 048
     Dates: start: 20140220, end: 20140316
  4. KEPPRA [Concomitant]
     Active Substance: LEVETIRACETAM
     Dosage: UNK UKN, UNK
     Route: 048

REACTIONS (5)
  - Drug eruption [Not Recovered/Not Resolved]
  - Liver disorder [Not Recovered/Not Resolved]
  - Rash [Unknown]
  - Hyperthermia [Unknown]
  - Disseminated intravascular coagulation [Not Recovered/Not Resolved]

NARRATIVE: CASE EVENT DATE: 20140316
